FAERS Safety Report 5001282-8 (Version None)
Quarter: 2006Q1

REPORT INFORMATION
  Report Type: 
  Country: None (occurrence: None)
  Receive Date: 20060315
  Receipt Date: 20060214
  Transmission Date: 20060701
  Serious: Yes (Hospitalization)
  Sender: FDA-Public Use
  Company Number: 436827

PATIENT
  Age: 52 Year
  Sex: Female

DRUGS (1)
  1. BONIVA [Suspect]
     Dosage: 150 MG 1 PER MONTH ORAL
     Route: 048
     Dates: start: 20050726, end: 20050726

REACTIONS (1)
  - OESOPHAGITIS [None]
